FAERS Safety Report 25224078 (Version 1)
Quarter: 2025Q2

REPORT INFORMATION
  Report Type: Spontaneous
  Country: US (occurrence: US)
  Receive Date: 20250422
  Receipt Date: 20250422
  Transmission Date: 20250717
  Serious: No
  Sender: CIPLA
  Company Number: US-CIPLA LTD.-2025US04534

PATIENT

DRUGS (5)
  1. ALBUTEROL [Suspect]
     Active Substance: ALBUTEROL
     Indication: Asthma
  2. ALBUTEROL [Suspect]
     Active Substance: ALBUTEROL
     Dates: start: 202503
  3. IRON [Concomitant]
     Active Substance: IRON
     Indication: Anaemia
     Dosage: 20 MILLIGRAM, QOD (ONE PILL EVERY OTHER DAY, REASON FOR THIS WAS IT CONSTIPATES IF TAKES EVERY DAY)-
     Route: 065
  4. IRON [Concomitant]
     Active Substance: IRON
     Indication: Hypotension
  5. HYDROCHLOROTHIAZIDE [Concomitant]
     Active Substance: HYDROCHLOROTHIAZIDE
     Indication: Hypertension
     Dosage: 4 MILLIGRAM, QD (ONCE A DAY), START DATE: 10 OR 15 YEARS, IT COULD BE LONGER
     Route: 065

REACTIONS (4)
  - Drug dose omission by device [Unknown]
  - Device delivery system issue [Unknown]
  - Device mechanical issue [Unknown]
  - Device malfunction [Unknown]

NARRATIVE: CASE EVENT DATE: 20250301
